FAERS Safety Report 9005864 (Version 2)
Quarter: 2013Q1

REPORT INFORMATION
  Report Type: Spontaneous
  Country: DE (occurrence: DE)
  Receive Date: 20130109
  Receipt Date: 20130115
  Transmission Date: 20140127
  Serious: Yes (Other)
  Sender: FDA-Public Use
  Company Number: PHHY2013DE001296

PATIENT
  Sex: Female

DRUGS (5)
  1. CO-DIOVAN [Suspect]
     Indication: HYPERTENSION
     Dosage: 1 DF(80/12.5 UNK), QD
     Route: 048
     Dates: start: 20121018
  2. BELOC-ZOC COMP [Concomitant]
     Indication: HYPERTENSION
     Dosage: 1 DF, BID
     Route: 048
     Dates: start: 1978
  3. PHYSIOTENS [Concomitant]
     Indication: HYPERTENSION
     Dosage: 1 DF, BID
     Route: 048
  4. METFORMIN [Concomitant]
     Indication: DIABETES MELLITUS
     Dosage: 2.5 DF, QD
     Route: 048
  5. NITRO [Concomitant]
     Indication: HYPERTENSION
     Dosage: EVERY 5 DAYS

REACTIONS (3)
  - Skin haemorrhage [Unknown]
  - Dry skin [Not Recovered/Not Resolved]
  - Blood pressure decreased [Unknown]
